FAERS Safety Report 4759828-0 (Version None)
Quarter: 2005Q3

REPORT INFORMATION
  Report Type: 
  Country: None (occurrence: None)
  Receive Date: 20050831
  Receipt Date: 20050831
  Transmission Date: 20060218
  Serious: Yes (Other)
  Sender: FDA-Public Use
  Company Number: None

PATIENT
  Sex: Male
  Weight: 63.5036 kg

DRUGS (3)
  1. WARFARIN    JANTOVEN  5MG    UPSHER-SMITH [Suspect]
     Indication: ANTICOAGULANT THERAPY
     Dosage: 5MG  ONCE DAILY  PO
     Route: 048
     Dates: start: 20050820, end: 20050830
  2. PLAVIX [Concomitant]
  3. ASPIRIN [Concomitant]

REACTIONS (3)
  - CAPILLARY DISORDER [None]
  - CONTUSION [None]
  - RASH MACULAR [None]
